FAERS Safety Report 23094530 (Version 8)
Quarter: 2024Q3

REPORT INFORMATION
  Report Type: Spontaneous
  Country: US (occurrence: US)
  Receive Date: 20231023
  Receipt Date: 20240918
  Transmission Date: 20241017
  Serious: Yes (Other)
  Sender: SANOFI AVENTIS
  Company Number: US-SA-SAC20231021000449

PATIENT
  Age: 49 Year
  Sex: Male
  Weight: 66.667 kg

DRUGS (4)
  1. ALPROLIX [Suspect]
     Active Substance: EFTRENONACOG ALFA
     Indication: Factor IX deficiency
     Dosage: 6000 U (5400-6600), QW
     Route: 042
     Dates: start: 202102
  2. ALPROLIX [Suspect]
     Active Substance: EFTRENONACOG ALFA
     Indication: Factor IX deficiency
     Dosage: 6000 U (5400-6600), QW
     Route: 042
     Dates: start: 202102
  3. ALPROLIX [Suspect]
     Active Substance: EFTRENONACOG ALFA
     Dosage: 6000 U (5400-6600), PRN
     Route: 042
     Dates: start: 202102
  4. ALPROLIX [Suspect]
     Active Substance: EFTRENONACOG ALFA
     Dosage: 6000 U (5400-6600), PRN
     Route: 042
     Dates: start: 202102

REACTIONS (9)
  - Haemorrhage [Unknown]
  - Haemarthrosis [Recovered/Resolved]
  - Arthralgia [Recovering/Resolving]
  - Haemorrhage [Recovered/Resolved]
  - Discomfort [Unknown]
  - Weight decreased [Unknown]
  - Haemorrhage [Recovered/Resolved]
  - Weight increased [Unknown]
  - Haemorrhage [Unknown]

NARRATIVE: CASE EVENT DATE: 20231016
